FAERS Safety Report 8224630-4 (Version None)
Quarter: 2012Q1

REPORT INFORMATION
  Report Type: 
  Country: None (occurrence: None)
  Receive Date: 20120320
  Receipt Date: 20120320
  Transmission Date: 20120608
  Serious: No
  Sender: FDA-Public Use
  Company Number: None

PATIENT

DRUGS (3)
  1. LENSCALE ALLERGENIC EXTRACT [Suspect]
  2. LENSCALE ALLERGENIC EXTRACT [Suspect]
     Indication: RHINITIS ALLERGIC
     Dosage: Q 2-4 WEEKS
     Dates: start: 20110111, end: 20111103
  3. LENSCALE ALLERGENIC EXTRACT [Suspect]
     Indication: SINUSITIS
     Dosage: Q 2-4 WEEKS
     Dates: start: 20110111, end: 20111103

REACTIONS (4)
  - PRURITUS [None]
  - SWELLING FACE [None]
  - ERYTHEMA [None]
  - THROAT TIGHTNESS [None]
